FAERS Safety Report 5261593-8 (Version None)
Quarter: 2007Q1

REPORT INFORMATION
  Report Type: 
  Country: None (occurrence: None)
  Receive Date: 20061218
  Receipt Date: 20060817
  Transmission Date: 20070707
  Serious: No
  Sender: FDA-Public Use
  Company Number: US200608004175

PATIENT
  Sex: Male

DRUGS (1)
  1. CIALIS [Suspect]

REACTIONS (2)
  - BRUXISM [None]
  - TEMPOROMANDIBULAR JOINT SYNDROME [None]
